FAERS Safety Report 8547248-2 (Version None)
Quarter: 2012Q3

REPORT INFORMATION
  Report Type: 
  Country: None (occurrence: None)
  Receive Date: 20120727
  Receipt Date: 20120301
  Transmission Date: 20120928
  Serious: No
  Sender: FDA-Public Use
  Company Number: US-ASTRAZENECA-2012SE14420

PATIENT
  Sex: Female

DRUGS (4)
  1. SEROQUEL [Suspect]
     Indication: BIPOLAR DISORDER
     Dosage: (HS) AT NIGHT
     Route: 048
  2. DEPAKOTE [Concomitant]
     Indication: DRUG WITHDRAWAL MAINTENANCE THERAPY
  3. CHOLESTEROL MEDICINES [Concomitant]
  4. BLOOD PRESSURE MEDICINES [Concomitant]

REACTIONS (10)
  - DECREASED APPETITE [None]
  - TARDIVE DYSKINESIA [None]
  - DRUG PRESCRIBING ERROR [None]
  - NAUSEA [None]
  - INSOMNIA [None]
  - IRRITABILITY [None]
  - DRUG DEPENDENCE [None]
  - DRUG DOSE OMISSION [None]
  - MALAISE [None]
  - RETCHING [None]
